FAERS Safety Report 9345863 (Version 5)
Quarter: 2013Q4

REPORT INFORMATION
  Report Type: Report from Study
  Country: NO (occurrence: NO)
  Receive Date: 20130613
  Receipt Date: 20131104
  Transmission Date: 20140711
  Serious: Yes (Death, Hospitalization, Other)
  Sender: FDA-Public Use
  Company Number: NO-PFIZER INC-2013173539

PATIENT
  Age: 42 Year
  Sex: Female
  Weight: 82 kg

DRUGS (6)
  1. MEDROL [Suspect]
     Indication: NAUSEA
     Dosage: 32 MG, 1X/DAY
     Route: 048
     Dates: start: 20121212
  2. TRASTUZUMAB-DM1 [Suspect]
     Indication: BREAST CANCER METASTATIC
     Dosage: 270 MG, UNK
     Route: 042
     Dates: start: 20130227, end: 20130903
  3. NEURONTIN [Concomitant]
     Indication: ANALGESIC THERAPY
     Dosage: 600 MG, 3X/DAY
     Route: 048
     Dates: start: 20121025
  4. SOMAC [Concomitant]
     Indication: PROPHYLAXIS
     Dosage: 40 MG, 1X/DAY
     Route: 048
     Dates: start: 20121025
  5. OXYCODONE [Concomitant]
     Dosage: 10 MG, 2X/DAY
     Route: 048
     Dates: end: 20121126
  6. FENTANYL [Concomitant]
     Indication: ANALGESIC THERAPY
     Dosage: 200 UG
     Route: 062
     Dates: end: 20130325

REACTIONS (12)
  - Metastases to lung [Fatal]
  - Metastatic neoplasm [Fatal]
  - Disease progression [Fatal]
  - Pneumonia [Recovered/Resolved]
  - Dizziness [Recovered/Resolved]
  - Constipation [Recovered/Resolved]
  - Vomiting [Unknown]
  - Myalgia [Recovered/Resolved]
  - Fatigue [Recovering/Resolving]
  - Nausea [Recovering/Resolving]
  - Headache [Recovered/Resolved]
  - Decreased appetite [Recovered/Resolved]
